FAERS Safety Report 7331828-6 (Version None)
Quarter: 2011Q1

REPORT INFORMATION
  Report Type: 
  Country: None (occurrence: None)
  Receive Date: 20110304
  Receipt Date: 20110225
  Transmission Date: 20110831
  Serious: Yes (Hospitalization)
  Sender: FDA-Public Use
  Company Number: DE-MEDIMMUNE-MEDI-0012768

PATIENT
  Sex: Male

DRUGS (4)
  1. SYNAGIS [Suspect]
     Dates: start: 20100304, end: 20110204
  2. BUDESONIDE [Concomitant]
  3. PHENOBARBITAL [Concomitant]
  4. SALBUTAMOL [Concomitant]

REACTIONS (1)
  - BRONCHOPNEUMONIA [None]
